FAERS Safety Report 7027466-5 (Version None)
Quarter: 2010Q3

REPORT INFORMATION
  Report Type: 
  Country: None (occurrence: None)
  Receive Date: 20100930
  Receipt Date: 20100921
  Transmission Date: 20110219
  Serious: Yes (Death)
  Sender: FDA-Public Use
  Company Number: 2010EU005053

PATIENT
  Age: 63 Year
  Sex: Male

DRUGS (1)
  1. MYCAMINE [Suspect]
     Indication: PALLIATIVE CARE
     Dosage: 100 MG, /D, IV NOS
     Route: 042
     Dates: start: 20100914, end: 20100914

REACTIONS (6)
  - CIRCULATORY COLLAPSE [None]
  - HEPATIC FAILURE [None]
  - MULTI-ORGAN FAILURE [None]
  - RENAL FAILURE [None]
  - RESPIRATORY FAILURE [None]
  - SEPTIC SHOCK [None]
